FAERS Safety Report 15887903 (Version 1)
Quarter: 2019Q1

REPORT INFORMATION
  Report Type: Report from Study
  Country: None (occurrence: ID)
  Receive Date: 20190130
  Receipt Date: 20190130
  Transmission Date: 20190417
  Serious: Yes (Other)
  Sender: FDA-Public Use
  Company Number: ID-INGENUS PHARMACEUTICALS NJ, LLC-ING201901-000048

PATIENT
  Age: 52 Year

DRUGS (3)
  1. WARFARIN [Suspect]
     Active Substance: WARFARIN
  2. CLOPIDOGREL [Suspect]
     Active Substance: CLOPIDOGREL BISULFATE
  3. CARISOPRODOL, ASPIRIN AND CODEINE PHOSPHATE [Suspect]
     Active Substance: ASPIRIN\CARISOPRODOL\CODEINE PHOSPHATE

REACTIONS (1)
  - Anaemia [Unknown]
